FAERS Safety Report 5050460-0 (Version None)
Quarter: 2006Q2

REPORT INFORMATION
  Report Type: 
  Country: None (occurrence: None)
  Receive Date: 20060614
  Receipt Date: 20060421
  Transmission Date: 20061013
  Serious: Yes (Other)
  Sender: FDA-Public Use
  Company Number: 432890

PATIENT
  Age: 85 Year
  Sex: Female
  Weight: 48.5 kg

DRUGS (3)
  1. BONIVA [Suspect]
     Indication: DRUG USE FOR UNKNOWN INDICATION
     Dosage: ORAL
     Route: 048
     Dates: start: 20050515
  2. PROTONIX [Concomitant]
  3. CALCIUM GLUCONATE [Concomitant]

REACTIONS (5)
  - CHILLS [None]
  - MUSCULOSKELETAL STIFFNESS [None]
  - MYALGIA [None]
  - PYREXIA [None]
  - RASH [None]
